FAERS Safety Report 5812412-X (Version None)
Quarter: 2008Q3

REPORT INFORMATION
  Report Type: 
  Country: None (occurrence: None)
  Receive Date: 20080711
  Receipt Date: 20080702
  Transmission Date: 20090109
  Serious: Yes (Other)
  Sender: FDA-Public Use
  Company Number: CHNY2008NL02548

PATIENT
  Sex: Female
  Weight: 4.1 kg

DRUGS (2)
  1. CLEMASTINE FUMARATE [Suspect]
     Dosage: MATERNAL DOSE: 0.5 MG 2X/DAY, TRANSPLACENTAL
     Route: 064
  2. LABETALOL HYDROCHLORIDE [Suspect]
     Dosage: MATERNAL DOSE: 100 MG 2X/DAY, TRANSPLACENTAL
     Route: 064

REACTIONS (3)
  - BRADYCARDIA NEONATAL [None]
  - HYPOTHERMIA NEONATAL [None]
  - MATERNAL DRUGS AFFECTING FOETUS [None]
